FAERS Safety Report 19837951 (Version 1)
Quarter: 2021Q3

REPORT INFORMATION
  Report Type: Spontaneous
  Country: US (occurrence: US)
  Receive Date: 20210914
  Receipt Date: 20210914
  Transmission Date: 20211014
  Serious: Yes (Hospitalization)
  Sender: FDA-Public Use
  Company Number: None

PATIENT
  Sex: Male

DRUGS (12)
  1. FOLIC ACID. [Concomitant]
     Active Substance: FOLIC ACID
  2. AZACITIDINE. [Concomitant]
     Active Substance: AZACITIDINE
  3. ALBUTEROL. [Concomitant]
     Active Substance: ALBUTEROL
  4. LATANOPROST. [Concomitant]
     Active Substance: LATANOPROST
  5. ALLOPURINOL. [Concomitant]
     Active Substance: ALLOPURINOL
  6. TIMOLOL. [Concomitant]
     Active Substance: TIMOLOL
  7. FLUTICASONE PROPIONATE. [Concomitant]
     Active Substance: FLUTICASONE PROPIONATE
  8. LASIX [Concomitant]
     Active Substance: FUROSEMIDE
  9. ZOFRAN [Concomitant]
     Active Substance: ONDANSETRON HYDROCHLORIDE
  10. DEFERASIROX 500MG TABLET [Suspect]
     Active Substance: DEFERASIROX
     Indication: MYELODYSPLASTIC SYNDROME
     Route: 048
     Dates: start: 20201210
  11. BRIMONIDINE [Concomitant]
     Active Substance: BRIMONIDINE TARTRATE
  12. XYZAL [Concomitant]
     Active Substance: LEVOCETIRIZINE DIHYDROCHLORIDE

REACTIONS (1)
  - Hospitalisation [None]
